FAERS Safety Report 7905240-2 (Version None)
Quarter: 2011Q4

REPORT INFORMATION
  Report Type: 
  Country: None (occurrence: None)
  Receive Date: 20111109
  Receipt Date: 20111108
  Transmission Date: 20120403
  Serious: No
  Sender: FDA-Public Use
  Company Number: US-BAYER-2011-108402

PATIENT

DRUGS (1)
  1. ULTRAVIST 150 [Suspect]

REACTIONS (2)
  - RASH [None]
  - URTICARIA [None]
